FAERS Safety Report 7620595-4 (Version None)
Quarter: 2011Q3

REPORT INFORMATION
  Report Type: 
  Country: None (occurrence: None)
  Receive Date: 20110719
  Receipt Date: 20110707
  Transmission Date: 20111222
  Serious: Yes (Hospitalization)
  Sender: FDA-Public Use
  Company Number: JP-ROCHE-789350

PATIENT
  Sex: Female

DRUGS (3)
  1. XELODA [Suspect]
     Dosage: DRUG REPORTED AS XELODA 300 DOSAGE IS UNCERTAIN
     Route: 048
  2. OXALIPLATIN [Concomitant]
     Dosage: DOSAGE IS UNCERTAIN
     Route: 041
  3. AVASTIN [Suspect]
     Route: 041

REACTIONS (1)
  - SHOCK [None]
